FAERS Safety Report 21351051 (Version 1)
Quarter: 2022Q3

REPORT INFORMATION
  Report Type: Spontaneous
  Country: US (occurrence: None)
  Receive Date: 20220919
  Receipt Date: 20220919
  Transmission Date: 20221027
  Serious: No
  Sender: FDA-Public Use
  Company Number: None

PATIENT
  Age: 84 Year
  Sex: Female
  Weight: 74.25 kg

DRUGS (12)
  1. MOLNUPIRAVIR [Suspect]
     Active Substance: MOLNUPIRAVIR
     Indication: COVID-19
     Dosage: OTHER QUANTITY : 4 CAPSULE(S);?FREQUENCY : TWICE A DAY;?
     Route: 048
     Dates: start: 20220916, end: 20220918
  2. ESTRADIOL [Concomitant]
     Active Substance: ESTRADIOL
  3. LEVOTHYROXINE [Concomitant]
     Active Substance: LEVOTHYROXINE
  4. SIMVASTATIN [Concomitant]
     Active Substance: SIMVASTATIN
  5. TRIAMTERENE AND HYDROCHLOROTHIAZIDE [Concomitant]
     Active Substance: HYDROCHLOROTHIAZIDE\TRIAMTERENE
  6. FLUTICASONE [Concomitant]
     Active Substance: FLUTICASONE
  7. CALCIUM-MAGNESIUM-ZINC [Concomitant]
  8. ASPIRIN [Concomitant]
     Active Substance: ASPIRIN
  9. COENZYME Q10 [Concomitant]
     Active Substance: DIETARY SUPPLEMENT\UBIDECARENONE
  10. CURCUMIN [Concomitant]
     Active Substance: CURCUMIN
  11. POTASSIUM CHLORATE POWDER [Concomitant]
  12. MULTIVITAMIN FOR SENIORS [Concomitant]

REACTIONS (7)
  - Dysstasia [None]
  - Balance disorder [None]
  - Dizziness [None]
  - Nausea [None]
  - Dyspepsia [None]
  - Decreased appetite [None]
  - Cold sweat [None]

NARRATIVE: CASE EVENT DATE: 20220918
